FAERS Safety Report 7973077-4 (Version None)
Quarter: 2011Q4

REPORT INFORMATION
  Report Type: 
  Country: None (occurrence: None)
  Receive Date: 20111209
  Receipt Date: 20111129
  Transmission Date: 20120403
  Serious: Yes (Other)
  Sender: FDA-Public Use
  Company Number: PNIS20110023

PATIENT
  Age: 53 Year
  Sex: Male

DRUGS (6)
  1. PREDNISOLONE [Suspect]
     Indication: IMMUNOSUPPRESSION
     Dosage: 10 MG/DAY, ORAL
     Route: 048
  2. MYCOPHENOLATE MOFETIL [Concomitant]
  3. CARVEDILOL [Concomitant]
  4. CYCLOSPORINE [Concomitant]
  5. ENALAPRIL MALEATE [Concomitant]
  6. MANIDIPINE (MANIDIPINE) (MANIDIPINE) [Concomitant]

REACTIONS (1)
  - CHORIORETINOPATHY [None]
